FAERS Safety Report 5259501-9 (Version None)
Quarter: 2007Q1

REPORT INFORMATION
  Report Type: 
  Country: None (occurrence: None)
  Receive Date: 20070306
  Receipt Date: 20070220
  Transmission Date: 20070707
  Serious: Yes (Death)
  Sender: FDA-Public Use
  Company Number: 2007AL000732

PATIENT
  Age: 62 Year
  Sex: Female

DRUGS (5)
  1. MIRTAZAPINE [Suspect]
     Dosage: PO
     Route: 048
  2. HYDROCODONE [Concomitant]
  3. DIPHENHYDRAMINE HCL [Concomitant]
  4. QUETIAPINE FUMARATE [Concomitant]
  5. TEMAZEPAM [Concomitant]

REACTIONS (3)
  - ARTERIOSCLEROSIS [None]
  - OEDEMA [None]
  - PULMONARY CONGESTION [None]
